FAERS Safety Report 8165333-4 (Version None)
Quarter: 2012Q1

REPORT INFORMATION
  Report Type: 
  Country: None (occurrence: None)
  Receive Date: 20120223
  Receipt Date: 20120223
  Transmission Date: 20120608
  Serious: Yes (Hospitalization)
  Sender: FDA-Public Use
  Company Number: None

PATIENT
  Age: 75 Year
  Sex: Male
  Weight: 78.8 kg

DRUGS (6)
  1. EPLERENONE [Suspect]
     Indication: CARDIAC FAILURE CONGESTIVE
     Dosage: 50 MG ONCE A DAY ORAL JAN 30, 2012 ONLY
     Route: 048
  2. EPLERENONE [Suspect]
     Indication: OEDEMA
     Dosage: 50 MG ONCE A DAY ORAL JAN 30, 2012 ONLY
     Route: 048
  3. EPLERENONE [Suspect]
     Indication: ASCITES
     Dosage: 50 MG ONCE A DAY ORAL JAN 30, 2012 ONLY
     Route: 048
  4. EPLERENONE [Suspect]
     Indication: CARDIAC FAILURE CONGESTIVE
     Dosage: 25 MG (1/2 OF 50 MG TAB) ONCE A DAY ORAL
     Route: 048
     Dates: start: 20120124, end: 20120128
  5. EPLERENONE [Suspect]
     Indication: ASCITES
     Dosage: 25 MG (1/2 OF 50 MG TAB) ONCE A DAY ORAL
     Route: 048
     Dates: start: 20120124, end: 20120128
  6. EPLERENONE [Suspect]
     Indication: OEDEMA
     Dosage: 25 MG (1/2 OF 50 MG TAB) ONCE A DAY ORAL
     Route: 048
     Dates: start: 20120124, end: 20120128

REACTIONS (4)
  - CONDITION AGGRAVATED [None]
  - ABDOMINAL PAIN [None]
  - CARDIAC FAILURE CONGESTIVE [None]
  - WEIGHT INCREASED [None]
